FAERS Safety Report 7225358-X (Version None)
Quarter: 2011Q1

REPORT INFORMATION
  Report Type: 
  Country: None (occurrence: None)
  Receive Date: 20110113
  Receipt Date: 20101231
  Transmission Date: 20110831
  Serious: Yes (Hospitalization)
  Sender: FDA-Public Use
  Company Number: FR-PURDUE-GBR-2010-0007543

PATIENT
  Sex: Female

DRUGS (5)
  1. OXYCONTIN [Suspect]
     Indication: PAIN
     Dosage: 20 MG, BID
     Route: 048
     Dates: start: 20101125
  2. OXYNORM CAPSULES 5 MG [Suspect]
     Indication: PAIN
     Dosage: 10 MG, DAILY
     Route: 048
     Dates: start: 20101127, end: 20101127
  3. ORAMORPH SR [Suspect]
     Indication: PRODUCT USED FOR UNKNOWN INDICATION
     Dosage: UNK
     Route: 048
     Dates: start: 20101124, end: 20101124
  4. ACETAMINOPHEN [Concomitant]
     Dosage: UNK
     Dates: start: 20101125
  5. OXYCONTIN [Suspect]
     Dosage: UNK

REACTIONS (2)
  - CYTOLYTIC HEPATITIS [None]
  - SPHINCTER OF ODDI DYSFUNCTION [None]
